FAERS Safety Report 5910057-4 (Version None)
Quarter: 2008Q4

REPORT INFORMATION
  Report Type: 
  Country: None (occurrence: None)
  Receive Date: 20081007
  Receipt Date: 20070822
  Transmission Date: 20090506
  Serious: No
  Sender: FDA-Public Use
  Company Number: US-ASTRAZENECA-2007UW20083

PATIENT
  Age: 626 Month
  Sex: Male
  Weight: 118 kg

DRUGS (2)
  1. ARIMIDEX [Suspect]
     Indication: PROPHYLAXIS
     Route: 048
  2. ANDROGEL [Suspect]
     Indication: BLOOD TESTOSTERONE DECREASED
     Route: 003
     Dates: start: 20070101

REACTIONS (2)
  - ALOPECIA [None]
  - HAIR TEXTURE ABNORMAL [None]
